FAERS Safety Report 5378144-X (Version None)
Quarter: 2007Q3

REPORT INFORMATION
  Report Type: 
  Country: None (occurrence: None)
  Receive Date: 20070705
  Receipt Date: 20070622
  Transmission Date: 20080115
  Serious: Yes (Other)
  Sender: FDA-Public Use
  Company Number: PHEH2007US05788

PATIENT
  Sex: Male

DRUGS (11)
  1. ZELNORM [Suspect]
     Indication: IRRITABLE BOWEL SYNDROME
  2. ALPRAZOLAM [Concomitant]
     Indication: IRRITABLE BOWEL SYNDROME
     Dosage: UNK, QHS
     Route: 048
  3. ASPIRIN [Concomitant]
     Dosage: 1 UNK, QD
     Route: 048
  4. DICYCLOMINE [Concomitant]
     Indication: ABDOMINAL DISTENSION
     Dosage: 10 MG, QD
  5. TRAMADOL HCL [Concomitant]
     Indication: ABDOMINAL PAIN UPPER
  6. FELODIPINE [Concomitant]
     Indication: HYPERTENSION
     Dosage: 5 MG, QHS
     Route: 048
  7. PANTOPRAZOLE SODIUM [Concomitant]
     Indication: REFLUX GASTRITIS
     Dosage: 40 MG, UNK
  8. FULVISTATIN [Concomitant]
     Dosage: 20 MG, QD
  9. FOLIC ACID [Concomitant]
  10. NITROGLYCERIN [Concomitant]
     Dosage: UNK, QD
  11. NITROGLYCERIN [Concomitant]
     Dosage: UNK, QHS
     Route: 060

REACTIONS (4)
  - ANGINA PECTORIS [None]
  - CARDIAC FLUTTER [None]
  - EJECTION FRACTION DECREASED [None]
  - HEART RATE ABNORMAL [None]
